FAERS Safety Report 7536881-2 (Version None)
Quarter: 2011Q2

REPORT INFORMATION
  Report Type: 
  Country: None (occurrence: None)
  Receive Date: 20110609
  Receipt Date: 20110531
  Transmission Date: 20111010
  Serious: Yes (Other)
  Sender: FDA-Public Use
  Company Number: US-ASTRAZENECA-2010SE56427

PATIENT
  Age: 84 Year
  Sex: Female

DRUGS (4)
  1. NEXIUM [Suspect]
     Route: 048
     Dates: start: 20100801
  2. DIOVAN [Concomitant]
  3. COREG [Concomitant]
  4. PLAVIX [Concomitant]

REACTIONS (3)
  - HEART VALVE REPLACEMENT [None]
  - BALANCE DISORDER [None]
  - OEDEMA PERIPHERAL [None]
